FAERS Safety Report 7342522-X (Version None)
Quarter: 2011Q1

REPORT INFORMATION
  Report Type: 
  Country: None (occurrence: None)
  Receive Date: 20110302
  Receipt Date: 20110221
  Transmission Date: 20110831
  Serious: Yes (Other)
  Sender: FDA-Public Use
  Company Number: TPA2011A00028

PATIENT
  Sex: Female

DRUGS (5)
  1. ACTOS [Suspect]
     Dosage: PER ORAL
     Route: 048
     Dates: start: 20100801, end: 20101027
  2. LANTUS [Concomitant]
  3. HUMULIN R (U500)(INSULIN HUMAN) [Concomitant]
  4. TWO UNKNOWN DIURETICS (DIURETICS) [Concomitant]
  5. UNKNOWN MIGRAINE MEDICATION (ANTIMIGRAINE PREPARATIONS) [Concomitant]

REACTIONS (23)
  - PULMONARY FIBROSIS [None]
  - VISION BLURRED [None]
  - EYE DISORDER [None]
  - PHOTOPHOBIA [None]
  - TOOTH FRACTURE [None]
  - WHEEZING [None]
  - VOMITING [None]
  - WEIGHT INCREASED [None]
  - HAEMORRHAGE [None]
  - DIZZINESS [None]
  - DYSPNOEA [None]
  - CONDITION AGGRAVATED [None]
  - CONVULSION [None]
  - CARDIAC FAILURE CONGESTIVE [None]
  - TOOTHACHE [None]
  - ASTHMA [None]
  - FEELING ABNORMAL [None]
  - CHEST PAIN [None]
  - DIPLOPIA [None]
  - OEDEMA PERIPHERAL [None]
  - CATARACT [None]
  - NO THERAPEUTIC RESPONSE [None]
  - MIGRAINE [None]
